FAERS Safety Report 23395134 (Version 1)
Quarter: 2024Q1

REPORT INFORMATION
  Report Type: Spontaneous
  Country: FR (occurrence: FR)
  Receive Date: 20240112
  Receipt Date: 20240112
  Transmission Date: 20240409
  Serious: Yes (Life-Threatening, Hospitalization, Other)
  Sender: FDA-Public Use
  Company Number: FR-AFSSAPS-BX2023002364

PATIENT
  Sex: Female

DRUGS (1)
  1. SERTRALINE [Suspect]
     Active Substance: SERTRALINE HYDROCHLORIDE
     Indication: Anxiety disorder
     Dosage: 150 MILLIGRAM, ONCE A DAY
     Route: 065
     Dates: end: 20231128

REACTIONS (1)
  - Neonatal pulmonary hypertension [Recovered/Resolved]

NARRATIVE: CASE EVENT DATE: 20231128
